FAERS Safety Report 7565250-4 (Version None)
Quarter: 2011Q2

REPORT INFORMATION
  Report Type: 
  Country: None (occurrence: None)
  Receive Date: 20110622
  Receipt Date: 20110614
  Transmission Date: 20111010
  Serious: Yes (Hospitalization)
  Sender: FDA-Public Use
  Company Number: IT-RB-029039-11

PATIENT

DRUGS (1)
  1. SUBOXONE [Suspect]
     Indication: PRODUCT USED FOR UNKNOWN INDICATION
     Dosage: DOSING INFORMATION IS UNKNOWN.
     Route: 064
     Dates: end: 20110101

REACTIONS (2)
  - HOSPITALISATION [None]
  - DRUG EXPOSURE DURING PREGNANCY [None]
